FAERS Safety Report 5217717-1 (Version None)
Quarter: 2007Q1

REPORT INFORMATION
  Report Type: 
  Country: None (occurrence: None)
  Receive Date: 20070124
  Receipt Date: 20070119
  Transmission Date: 20070707
  Serious: Yes (Death)
  Sender: FDA-Public Use
  Company Number: DE-BAYER-200710435GDS

PATIENT
  Age: 60 Year

DRUGS (6)
  1. APROTININ [Suspect]
     Indication: AORTIC ANEURYSM REPAIR
     Route: 042
  2. HEPARIN [Concomitant]
  3. PROTAMIN SULFATE [Concomitant]
     Route: 065
  4. RED BLOOD CELLS [Concomitant]
  5. FRESH FROZEN PLASMA [Concomitant]
  6. PLATELETS [Concomitant]

REACTIONS (2)
  - GRAFT THROMBOSIS [None]
  - INTRACARDIAC THROMBUS [None]
